FAERS Safety Report 8352049-4 (Version None)
Quarter: 2012Q2

REPORT INFORMATION
  Report Type: 
  Country: None (occurrence: None)
  Receive Date: 20120509
  Receipt Date: 20120509
  Transmission Date: 20120825
  Serious: Yes (Life-Threatening, Other)
  Sender: FDA-Public Use
  Company Number: None

PATIENT
  Age: 56 Year
  Sex: Female
  Weight: 50.8029 kg

DRUGS (1)
  1. ZIPRASIDONE HYDROCHLORIDE [Suspect]
     Indication: SCHIZOAFFECTIVE DISORDER
     Dosage: 40MG 1X A DAY
     Dates: start: 20120426, end: 20120504

REACTIONS (2)
  - PRODUCT SUBSTITUTION ISSUE [None]
  - PARANOIA [None]
